FAERS Safety Report 8521921-4 (Version None)
Quarter: 2012Q3

REPORT INFORMATION
  Report Type: 
  Country: None (occurrence: None)
  Receive Date: 20120719
  Receipt Date: 20120615
  Transmission Date: 20120928
  Serious: No
  Sender: FDA-Public Use
  Company Number: US-BRISTOL-MYERS SQUIBB COMPANY-16641292

PATIENT
  Sex: Male

DRUGS (1)
  1. YERVOY [Suspect]
     Dosage: LAST INF-26APR2012

REACTIONS (4)
  - PRURITUS [None]
  - FATIGUE [None]
  - RASH [None]
  - NAUSEA [None]
